FAERS Safety Report 10396747 (Version 1)
Quarter: 2014Q3

REPORT INFORMATION
  Report Type: Spontaneous
  Country: GB (occurrence: GB)
  Receive Date: 20140820
  Receipt Date: 20140820
  Transmission Date: 20150326
  Serious: Yes (Hospitalization)
  Sender: FDA-Public Use
  Company Number: PHHY2014GB099268

PATIENT
  Age: 78 Year
  Sex: Female

DRUGS (15)
  1. CEFALEXIN [Suspect]
     Active Substance: CEPHALEXIN
     Indication: URINARY TRACT INFECTION
     Dosage: 1 DF, QID, 250MG/5ML FOUR TIMES DAILY
     Route: 048
     Dates: start: 20140619
  2. CITALOPRAM [Concomitant]
     Active Substance: CITALOPRAM HYDROBROMIDE
  3. LANSOPRAZOLE. [Concomitant]
     Active Substance: LANSOPRAZOLE
  4. NYSTATIN. [Concomitant]
     Active Substance: NYSTATIN
  5. BISOPROLOL [Concomitant]
     Active Substance: BISOPROLOL
  6. GLYCERYL TRINITRATE [Concomitant]
     Active Substance: NITROGLYCERIN
  7. NICORANDIL [Concomitant]
     Active Substance: NICORANDIL
  8. PARACETAMOL [Concomitant]
     Active Substance: ACETAMINOPHEN
  9. ASPIRIN. [Concomitant]
     Active Substance: ASPIRIN
  10. TRIMETHOPRIM. [Suspect]
     Active Substance: TRIMETHOPRIM
     Indication: URINARY TRACT INFECTION
     Dosage: 10ML OF 50MG/5ML TWICE DAILY. 100MG TWICE DAILY NOT USUAL TREATMENT DOSE OF 200MG TWICE DAILY.
     Route: 048
     Dates: end: 20140627
  11. ZOPICLONE [Concomitant]
     Active Substance: ZOPICLONE
  12. FOSTAIR [Concomitant]
  13. FUROSEMIDE. [Suspect]
     Active Substance: FUROSEMIDE
  14. MOVELAT [Concomitant]
  15. SIMVASTATIN. [Concomitant]
     Active Substance: SIMVASTATIN

REACTIONS (3)
  - Drug ineffective [Unknown]
  - Prescribed underdose [Unknown]
  - Renal failure acute [Unknown]
